FAERS Safety Report 5102293-4 (Version None)
Quarter: 2006Q3

REPORT INFORMATION
  Report Type: 
  Country: None (occurrence: None)
  Receive Date: 20060908
  Receipt Date: 20060818
  Transmission Date: 20061208
  Serious: Yes (Other)
  Sender: FDA-Public Use
  Company Number: US200608004200

PATIENT
  Sex: Female

DRUGS (1)
  1. EVISTA [Suspect]
     Indication: FAMILIAL RISK FACTOR
     Dosage: ORAL
     Route: 048

REACTIONS (4)
  - DENTAL FISTULA [None]
  - DISCOMFORT [None]
  - LOCALISED INFECTION [None]
  - TOOTH FRACTURE [None]
